FAERS Safety Report 8500026-2 (Version None)
Quarter: 2012Q3

REPORT INFORMATION
  Report Type: 
  Country: None (occurrence: None)
  Receive Date: 20120710
  Receipt Date: 20120628
  Transmission Date: 20120928
  Serious: Yes (Hospitalization)
  Sender: FDA-Public Use
  Company Number: JP-UCBSA-058587

PATIENT
  Age: 45 Year
  Sex: Female

DRUGS (10)
  1. SELBEX [Suspect]
     Indication: GASTRITIS PROPHYLAXIS
     Dosage: DAILY DOSE : 100 MG
     Route: 048
     Dates: start: 20091216
  2. CALBLOCK [Suspect]
     Indication: HYPERTENSION
     Dosage: DAILY DOSE: 16 MG
     Route: 048
     Dates: start: 20120412
  3. LOXONIN [Suspect]
     Indication: BACK PAIN
     Dosage: 60 MG
     Route: 048
     Dates: start: 20120315
  4. RHEUMATREX [Suspect]
     Indication: RHEUMATOID ARTHRITIS
     Route: 048
     Dates: start: 20110324
  5. OLMESARTAN MEDOXOMIL [Suspect]
     Indication: HYPERTENSION
     Dosage: DAILY DOSE: 20 MG
     Route: 048
     Dates: start: 20120412
  6. CIMZIA [Suspect]
     Route: 058
     Dates: start: 20091028, end: 20101014
  7. CIMZIA [Suspect]
     Indication: RHEUMATOID ARTHRITIS
     Route: 058
     Dates: start: 20101027
  8. CELEBREX [Suspect]
     Indication: RHEUMATOID ARTHRITIS
     Dosage: DAILY DOSE:200 MG
     Route: 048
     Dates: start: 20091216
  9. KETOPROFEN [Suspect]
     Indication: BACK PAIN
     Dosage: SUFFICIENT QUANTITY
     Route: 062
     Dates: start: 20120315
  10. FOLIC ACID [Concomitant]
     Dates: start: 20110327

REACTIONS (1)
  - SUDDEN HEARING LOSS [None]
